FAERS Safety Report 25098360 (Version 1)
Quarter: 2025Q1

REPORT INFORMATION
  Report Type: Other
  Country: FR (occurrence: FR)
  Receive Date: 20250320
  Receipt Date: 20250320
  Transmission Date: 20250409
  Serious: Yes (Other)
  Sender: SIEMENS
  Company Number: None

PATIENT
  Age: 59 Year
  Sex: Female

DRUGS (1)
  1. FLUDEOXYGLUCOSE [Suspect]
     Active Substance: FLUDEOXYGLUCOSE
     Indication: Positron emission tomogram
     Route: 042
     Dates: start: 20240313, end: 20240313

REACTIONS (1)
  - Thrombocytopenia [Unknown]

NARRATIVE: CASE EVENT DATE: 20240301
